FAERS Safety Report 13694591 (Version 2)
Quarter: 2017Q3

REPORT INFORMATION
  Report Type: Spontaneous
  Country: US (occurrence: US)
  Receive Date: 20170627
  Receipt Date: 20170809
  Transmission Date: 20171127
  Serious: No
  Sender: FDA-Public Use
  Company Number: US-PFIZER INC-2017277617

PATIENT
  Age: 50 Year
  Sex: Female
  Weight: 88.45 kg

DRUGS (11)
  1. MELOXICAM. [Concomitant]
     Active Substance: MELOXICAM
  2. CYCLOBENZAPRINE. [Concomitant]
     Active Substance: CYCLOBENZAPRINE
  3. AMITRIPTYLINE [Concomitant]
     Active Substance: AMITRIPTYLINE
  4. TRAMADOL. [Concomitant]
     Active Substance: TRAMADOL
  5. LIDOCAINE HCL [Suspect]
     Active Substance: LIDOCAINE HYDROCHLORIDE
     Dosage: 10ML OF 2 PERCENT. THREE TO FIVE TREATMENTS A DAY.
  6. TOPIRAMATE. [Concomitant]
     Active Substance: TOPIRAMATE
  7. VALACYCLOVIR [Concomitant]
     Active Substance: VALACYCLOVIR HYDROCHLORIDE
  8. OMEPRAZOLE. [Concomitant]
     Active Substance: OMEPRAZOLE
  9. RIZATRIPTAN. [Concomitant]
     Active Substance: RIZATRIPTAN
  10. SODIUM BICARBONATE. [Suspect]
     Active Substance: SODIUM BICARBONATE
     Indication: CYSTITIS INTERSTITIAL
     Dosage: UNK (4ML OF SODIUM BICARBONATE THREE TO FIVE TREATMENTS A DAY)
     Dates: start: 201704
  11. GABAPENTIN. [Concomitant]
     Active Substance: GABAPENTIN

REACTIONS (11)
  - Condition aggravated [Unknown]
  - Bladder pain [Unknown]
  - Disease recurrence [Unknown]
  - Burning sensation [Not Recovered/Not Resolved]
  - Product use issue [Unknown]
  - Product quality issue [Unknown]
  - Crying [Not Recovered/Not Resolved]
  - Irritability [Not Recovered/Not Resolved]
  - Headache [Not Recovered/Not Resolved]
  - Urinary tract infection [Unknown]
  - Product use in unapproved indication [Unknown]

NARRATIVE: CASE EVENT DATE: 201704
